FAERS Safety Report 13675699 (Version 2)
Quarter: 2017Q3

REPORT INFORMATION
  Report Type: Spontaneous
  Country: TR (occurrence: TR)
  Receive Date: 20170621
  Receipt Date: 20170710
  Transmission Date: 20171127
  Serious: Yes (Disabling)
  Sender: FDA-Public Use
  Company Number: TR-ALLERGAN-1725710US

PATIENT
  Age: 15 Year
  Sex: Male
  Weight: 50 kg

DRUGS (7)
  1. MAXIDEX [Concomitant]
     Active Substance: DEXAMETHASONE
     Indication: HYPOTONY OF EYE
     Route: 047
  2. OZURDEX [Suspect]
     Active Substance: DEXAMETHASONE
     Dosage: 0.7 MG, SINGLE
     Route: 031
     Dates: start: 20141209, end: 20141209
  3. OZURDEX [Suspect]
     Active Substance: DEXAMETHASONE
     Dosage: 0.7 MG, SINGLE
     Route: 031
     Dates: start: 20150428, end: 20150428
  4. OZURDEX [Suspect]
     Active Substance: DEXAMETHASONE
     Dosage: 0.7 MG, SINGLE
     Route: 031
     Dates: start: 20161203, end: 20161203
  5. OZURDEX [Suspect]
     Active Substance: DEXAMETHASONE
     Dosage: 0.7 MG, SINGLE
     Route: 031
     Dates: start: 20150520, end: 20150520
  6. AZARGA [Concomitant]
     Active Substance: BRINZOLAMIDE\TIMOLOL MALEATE
     Indication: GLAUCOMA
     Route: 047
  7. OZURDEX [Suspect]
     Active Substance: DEXAMETHASONE
     Indication: CHORIORETINITIS
     Dosage: 0.7 MG, SINGLE
     Route: 031
     Dates: start: 20141126, end: 20141126

REACTIONS (1)
  - Atrophy of globe [Unknown]

NARRATIVE: CASE EVENT DATE: 20151013
